FAERS Safety Report 23847700 (Version 1)
Quarter: 2024Q2

REPORT INFORMATION
  Report Type: Spontaneous
  Country: US (occurrence: None)
  Receive Date: 20240510
  Receipt Date: 20240510
  Transmission Date: 20240716
  Serious: Yes (Hospitalization)
  Sender: FDA-Public Use
  Company Number: None

PATIENT
  Age: 83 Year
  Sex: Male
  Weight: 96.75 kg

DRUGS (9)
  1. FARXIGA [Suspect]
     Active Substance: DAPAGLIFLOZIN PROPANEDIOL
     Indication: Cardiac disorder
     Dosage: OTHER QUANTITY : 1 TABLET(S);?FREQUENCY : DAILY;?
     Route: 048
     Dates: start: 20240503, end: 20240507
  2. Levothroxine [Concomitant]
  3. LANSOPRAZOLE [Concomitant]
     Active Substance: LANSOPRAZOLE
  4. METOPROLOL [Concomitant]
     Active Substance: METOPROLOL
  5. ROSUVASTATIN [Concomitant]
     Active Substance: ROSUVASTATIN
  6. ENTRESTO [Concomitant]
     Active Substance: SACUBITRIL\VALSARTAN
  7. d3/k2 [Concomitant]
  8. MAGNESIUM [Concomitant]
     Active Substance: MAGNESIUM
  9. MELATONIN [Concomitant]

REACTIONS (4)
  - Fatigue [None]
  - Hypotension [None]
  - Dehydration [None]
  - Adverse drug reaction [None]

NARRATIVE: CASE EVENT DATE: 20240507
